FAERS Safety Report 7457195-5 (Version None)
Quarter: 2011Q2

REPORT INFORMATION
  Report Type: 
  Country: None (occurrence: None)
  Receive Date: 20110504
  Receipt Date: 20110502
  Transmission Date: 20111010
  Serious: No
  Sender: FDA-Public Use
  Company Number: US-PFIZER INC-2011095039

PATIENT
  Sex: Male

DRUGS (9)
  1. ALLEGRA D 24 HOUR [Concomitant]
     Indication: SEASONAL ALLERGY
     Dosage: UNK
     Route: 048
  2. ATENOLOL [Concomitant]
     Indication: HYPERTENSION
     Dosage: 50 MG, UNK
  3. HYDROCHLOROTHIAZIDE [Concomitant]
     Dosage: 25 MG, UNK
  4. SULFADINE [Concomitant]
     Dosage: 500 MG, 4X/DAY
  5. NEURONTIN [Suspect]
     Indication: DIABETIC NEUROPATHY
     Dosage: 300 MG, UNK
  6. GLUCOTROL [Concomitant]
     Indication: DIABETES MELLITUS
     Dosage: 5 MG, UNK
     Route: 048
  7. WELLBUTRIN [Concomitant]
     Dosage: 300 MG, 1X/DAY
     Route: 048
  8. LASIX [Concomitant]
     Dosage: 40 MG, UNK
     Route: 048
  9. NEURONTIN [Suspect]
     Indication: NERVE INJURY

REACTIONS (1)
  - SOMNOLENCE [None]
